FAERS Safety Report 7800576-8 (Version None)
Quarter: 2011Q4

REPORT INFORMATION
  Report Type: 
  Country: None (occurrence: None)
  Receive Date: 20111006
  Receipt Date: 20110923
  Transmission Date: 20120403
  Serious: Yes (Other)
  Sender: FDA-Public Use
  Company Number: US-ACTELION-A-US2011-52913

PATIENT

DRUGS (4)
  1. TRACLEER [Suspect]
     Indication: PULMONARY ARTERIAL HYPERTENSION
     Dosage: 125 MG, BID
     Route: 048
     Dates: start: 20110728, end: 20110817
  2. TRACLEER [Suspect]
     Dosage: 62.5 MG, BID
     Route: 048
     Dates: start: 20110616, end: 20110727
  3. LASIX [Concomitant]
  4. LEFLUNOMIDE [Suspect]
     Dosage: 20 MG, UNK
     Dates: end: 20110820

REACTIONS (9)
  - FATIGUE [None]
  - ASPARTATE AMINOTRANSFERASE INCREASED [None]
  - BLOOD THYROID STIMULATING HORMONE DECREASED [None]
  - ALANINE AMINOTRANSFERASE INCREASED [None]
  - URINARY TRACT INFECTION [None]
  - BLOOD ALKALINE PHOSPHATASE INCREASED [None]
  - BLOOD BILIRUBIN INCREASED [None]
  - DEHYDRATION [None]
  - LIVER FUNCTION TEST ABNORMAL [None]
